FAERS Safety Report 4271535-X (Version None)
Quarter: 2004Q1

REPORT INFORMATION
  Report Type: 
  Country: None (occurrence: None)
  Receive Date: 20040113
  Receipt Date: 20040102
  Transmission Date: 20041129
  Serious: Yes (Other)
  Sender: FDA-Public Use
  Company Number: DE-JNJFOC-20040100037

PATIENT
  Age: 28 Year
  Sex: Male

DRUGS (11)
  1. RISPERDAL [Suspect]
     Indication: SCHIZOPHRENIA, PARANOID TYPE
     Dosage: SEE IMAGE
     Dates: start: 20030123, end: 20030127
  2. RISPERDAL [Suspect]
     Indication: SCHIZOPHRENIA, PARANOID TYPE
     Dosage: SEE IMAGE
     Dates: start: 20030121
  3. RISPERDAL [Suspect]
     Indication: SCHIZOPHRENIA, PARANOID TYPE
     Dosage: SEE IMAGE
     Dates: start: 20030122
  4. RISPERDAL [Suspect]
     Indication: SCHIZOPHRENIA, PARANOID TYPE
     Dosage: SEE IMAGE
     Dates: start: 20030128
  5. SEROQUEL [Suspect]
     Dosage: SEE IMAGE
     Dates: start: 20030123, end: 20030126
  6. SEROQUEL [Suspect]
     Dosage: SEE IMAGE
     Dates: start: 20030128, end: 20030129
  7. SEROQUEL [Suspect]
     Dosage: SEE IMAGE
     Dates: start: 20030201, end: 20030202
  8. SEROQUEL [Suspect]
     Dosage: SEE IMAGE
     Dates: start: 20030127
  9. SEROQUEL [Suspect]
     Dosage: SEE IMAGE
     Dates: start: 20030131
  10. SEROQUEL [Suspect]
     Dosage: SEE IMAGE
     Dates: start: 20030203
  11. LORAZEPAM [Concomitant]

REACTIONS (1)
  - ILEUS [None]
